FAERS Safety Report 13067481 (Version 1)
Quarter: 2016Q4

REPORT INFORMATION
  Report Type: Spontaneous
  Country: IN (occurrence: IN)
  Receive Date: 20161228
  Receipt Date: 20161228
  Transmission Date: 20170207
  Serious: Yes (Other)
  Sender: FDA-Public Use
  Company Number: IN-AUROBINDO-AUR-APL-2014-00256

PATIENT
  Age: 29 Year
  Sex: Female

DRUGS (2)
  1. HERIB 200 TABLETS (RIBAVIRIN) [Suspect]
     Active Substance: RIBAVIRIN
     Indication: CHRONIC HEPATITIS C
     Dosage: UNK UNK,UNK,
     Route: 065
  2. PEGYLATED INTERFERON-?-2A [Suspect]
     Active Substance: PEGINTERFERON ALFA-2A
     Indication: CHRONIC HEPATITIS C
     Dosage: UNK UNK,UNK,
     Route: 065

REACTIONS (2)
  - Erythema annulare [Unknown]
  - Rash erythematous [Unknown]
